FAERS Safety Report 22249920 (Version 1)
Quarter: 2023Q2

REPORT INFORMATION
  Report Type: Spontaneous
  Country: FR (occurrence: FR)
  Receive Date: 20230425
  Receipt Date: 20230425
  Transmission Date: 20230721
  Serious: Yes (Hospitalization)
  Sender: FDA-Public Use
  Company Number: None

PATIENT
  Age: 58 Year
  Sex: Male
  Weight: 75 kg

DRUGS (12)
  1. VALIUM [Suspect]
     Active Substance: DIAZEPAM
     Indication: Psychotic disorder
     Dosage: ; IN TOTAL
     Route: 050
     Dates: start: 20230220, end: 20230220
  2. VALIUM [Suspect]
     Active Substance: DIAZEPAM
     Route: 050
     Dates: end: 20230219
  3. LOXAPINE [Suspect]
     Active Substance: LOXAPINE
     Indication: Psychotic disorder
     Dosage: ; AS REQUIRED
     Route: 050
     Dates: end: 20230219
  4. LOXAPINE [Suspect]
     Active Substance: LOXAPINE
     Dosage: ; IN TOTAL
     Route: 050
     Dates: start: 20230220, end: 20230220
  5. PAROXETINE HYDROCHLORIDE [Suspect]
     Active Substance: PAROXETINE HYDROCHLORIDE
     Indication: Psychotic disorder
     Route: 050
  6. GABAPENTIN [Suspect]
     Active Substance: GABAPENTIN
     Indication: Psychotic disorder
     Route: 050
  7. HALDOL [Suspect]
     Active Substance: HALOPERIDOL
     Indication: Psychotic disorder
     Route: 050
  8. ESOMEPRAZOLE [Concomitant]
     Active Substance: ESOMEPRAZOLE
     Indication: Prophylaxis against gastrointestinal ulcer
     Route: 050
  9. ATENOLOL [Concomitant]
     Active Substance: ATENOLOL
     Indication: Prophylaxis
  10. RAMIPRIL [Concomitant]
     Active Substance: RAMIPRIL
     Indication: Prophylaxis
     Route: 050
  11. PRAVASTATIN SODIUM [Concomitant]
     Active Substance: PRAVASTATIN SODIUM
     Indication: Prophylaxis
     Route: 050
  12. METFORMIN HYDROCHLORIDE [Concomitant]
     Active Substance: METFORMIN HYDROCHLORIDE
     Indication: Type 2 diabetes mellitus
     Route: 050

REACTIONS (1)
  - Coma [Recovered/Resolved]

NARRATIVE: CASE EVENT DATE: 20230220
